FAERS Safety Report 24378206 (Version 1)
Quarter: 2024Q3

REPORT INFORMATION
  Report Type: Spontaneous
  Country: CN (occurrence: CN)
  Receive Date: 20240930
  Receipt Date: 20240930
  Transmission Date: 20241017
  Serious: Yes (Hospitalization, Other)
  Sender: ZHEJIANG XIANJU PHARMA
  Company Number: CN-Hisun Pharmaceuticals USA Inc.-000002

PATIENT
  Age: 66 Year
  Sex: Female

DRUGS (2)
  1. PREDNISOLONE [Suspect]
     Active Substance: PREDNISOLONE
     Indication: Hepatic encephalopathy
  2. PREDNISOLONE [Suspect]
     Active Substance: PREDNISOLONE
     Indication: Hepatic encephalopathy

REACTIONS (3)
  - Steroid diabetes [Recovering/Resolving]
  - Cushingoid [Unknown]
  - Oedema [Recovered/Resolved]
